FAERS Safety Report 4915146-9 (Version None)
Quarter: 2006Q1

REPORT INFORMATION
  Report Type: 
  Country: None (occurrence: None)
  Receive Date: 20060113
  Receipt Date: 20051026
  Transmission Date: 20060701
  Serious: No
  Sender: FDA-Public Use
  Company Number: 2005SP003682

PATIENT
  Age: 75 Year
  Sex: Female

DRUGS (7)
  1. LUNESTA [Suspect]
     Dosage: 3 MG;HS;ORAL
     Route: 048
     Dates: start: 20050101
  2. THYROXINE SODIUM [Concomitant]
  3. DIOVANE [Concomitant]
  4. CORDARONE [Concomitant]
  5. VYTORIN [Concomitant]
  6. TOPROL-XL [Concomitant]
  7. NEURONTIN [Concomitant]

REACTIONS (4)
  - DRUG INEFFECTIVE [None]
  - INSOMNIA [None]
  - NERVOUSNESS [None]
  - RESTLESSNESS [None]
